FAERS Safety Report 6039269-9 (Version None)
Quarter: 2009Q1

REPORT INFORMATION
  Report Type: 
  Country: None (occurrence: None)
  Receive Date: 20090115
  Receipt Date: 20090112
  Transmission Date: 20090719
  Serious: Yes (Death, Hospitalization)
  Sender: FDA-Public Use
  Company Number: PHHY2008GB23699

PATIENT
  Sex: Female
  Weight: 35.5 kg

DRUGS (11)
  1. ACLASTA [Suspect]
     Indication: OSTEOPOROSIS
     Dosage: 5 MG ANNUALLY
     Route: 042
     Dates: start: 20080425
  2. HYDROXYCHLOROQUINE SULFATE [Concomitant]
     Indication: RHEUMATOID ARTHRITIS
     Dosage: 200 MG 3 DAYS PER WEEK
     Route: 048
  3. SULFASALAZINE [Concomitant]
     Indication: RHEUMATOID ARTHRITIS
     Dosage: 1 G/DAY
     Route: 048
  4. METHOTREXATE [Concomitant]
     Indication: RHEUMATOID ARTHRITIS
     Dosage: 22.5 MG WEEKLY
     Route: 048
  5. FOLIC ACID [Concomitant]
     Indication: RHEUMATOID ARTHRITIS
     Dosage: 5 MG WEEKLY
     Route: 048
  6. LANSOPRAZOLE [Concomitant]
     Indication: PEPTIC ULCER
     Dosage: 30 MG/DAY
     Route: 048
  7. ATENOLOL [Concomitant]
     Indication: HYPERTENSION
     Dosage: 100 MG/DAY
     Route: 048
  8. ASPIRIN [Concomitant]
     Indication: MYOCARDIAL ISCHAEMIA
     Dosage: 75 MG/DAY
     Route: 048
  9. FRUSEMIDE [Concomitant]
     Indication: MYOCARDIAL ISCHAEMIA
     Dosage: 40 MG/DAY
     Route: 048
  10. GLUCOSAMINE SULFATE W/CHONDROITIN [Concomitant]
     Indication: ARTHRITIS
     Dosage: 1 TABLET
     Route: 048
  11. DIHYDROCODEINE BITARTRATE INJ [Concomitant]
     Indication: PAIN
     Dosage: 30 MG/DAY
     Route: 048

REACTIONS (8)
  - APLASTIC ANAEMIA [None]
  - BIOPSY BONE MARROW [None]
  - BONE MARROW FAILURE [None]
  - MALAISE [None]
  - NAUSEA [None]
  - NEUTROPENIC SEPSIS [None]
  - NEUTROPHILIA [None]
  - VOMITING [None]
